FAERS Safety Report 11074690 (Version 1)
Quarter: 2015Q2

REPORT INFORMATION
  Report Type: Spontaneous
  Country: GB (occurrence: None)
  Receive Date: 20150427
  Receipt Date: 20150427
  Transmission Date: 20150821
  Serious: Yes (Other)
  Sender: FDA-Public Use
  Company Number: SP09331

PATIENT
  Age: 57 Year
  Sex: Female
  Weight: 63 kg

DRUGS (2)
  1. OMEPRAZOLE. [Concomitant]
     Active Substance: OMEPRAZOLE
  2. MOVIPREP [Suspect]
     Active Substance: ASCORBIC ACID\POLYETHYLENE GLYCOL 3350\POTASSIUM CHLORIDE\SODIUM ASCORBATE\SODIUM CHLORIDE\SODIUM SULFATE
     Indication: SIGMOIDOSCOPY
     Dosage: (2 DOSAGE FORMS) , ORAL
     Route: 048
     Dates: start: 20150324

REACTIONS (5)
  - Discomfort [None]
  - Activities of daily living impaired [None]
  - Eructation [None]
  - Gastrointestinal inflammation [None]
  - Impaired work ability [None]

NARRATIVE: CASE EVENT DATE: 20150324
